FAERS Safety Report 4286538-9 (Version None)
Quarter: 2004Q1

REPORT INFORMATION
  Report Type: 
  Country: None (occurrence: None)
  Receive Date: 20040204
  Receipt Date: 20040126
  Transmission Date: 20041129
  Serious: Yes (Death)
  Sender: FDA-Public Use
  Company Number: GB-JNJFOC-20040105162

PATIENT
  Age: 63 Year
  Sex: Female

DRUGS (2)
  1. DOXORUBICIN HYDROCHLORIDE [Suspect]
     Indication: TONSIL CANCER
     Dosage: 40 MG/M2 EVERY 3 WEEKS X2 CYCLES
  2. RADIATION THERAPY (OTHER DIAGNOSTIC AGENTS) [Suspect]
     Indication: TONSIL CANCER
     Dosage: TOTAL 48 GY

REACTIONS (2)
  - METASTASES TO LIVER [None]
  - OVARIAN CANCER METASTATIC [None]
